FAERS Safety Report 15776271 (Version 1)
Quarter: 2018Q4

REPORT INFORMATION
  Report Type: Spontaneous
  Country: ES (occurrence: ES)
  Receive Date: 20181231
  Receipt Date: 20181231
  Transmission Date: 20190205
  Serious: Yes (Life-Threatening, Disabling)
  Sender: FDA-Public Use
  Company Number: ES-BAYER-2018-240995

PATIENT
  Age: 58 Year
  Sex: Female
  Weight: 46 kg

DRUGS (5)
  1. PROGEFFIK [Interacting]
     Active Substance: PROGESTERONE
     Dosage: UNK
     Route: 048
  2. ADIRO 100 MG [Suspect]
     Active Substance: ASPIRIN
     Dosage: UNK
  3. HYDRAPRES [Interacting]
     Active Substance: HYDRALAZINE HYDROCHLORIDE
     Indication: PRE-ECLAMPSIA
     Dosage: UNK
  4. EUTIROX [Interacting]
     Active Substance: LEVOTHYROXINE SODIUM
     Indication: HYPOTHYROIDISM
     Dosage: UNK
  5. CLEXANE [Interacting]
     Active Substance: ENOXAPARIN SODIUM
     Dosage: UNK

REACTIONS (2)
  - Intracranial pressure increased [Recovered/Resolved with Sequelae]
  - Migraine [Recovered/Resolved with Sequelae]

NARRATIVE: CASE EVENT DATE: 20110215
